FAERS Safety Report 8551181 (Version 3)
Quarter: 2013Q1

REPORT INFORMATION
  Report Type: Report from Study
  Country: FR (occurrence: FR)
  Receive Date: 20120508
  Receipt Date: 20130307
  Transmission Date: 20140127
  Serious: Yes (Other)
  Sender: FDA-Public Use
  Company Number: FR-GENZYME-CLOF-1002138

PATIENT
  Age: 49 Year
  Sex: Male

DRUGS (11)
  1. EVOLTRA [Suspect]
     Indication: ACUTE MYELOID LEUKAEMIA
     Dosage: 60 MG, UNK
     Route: 065
     Dates: start: 20110916, end: 20110920
  2. EVOLTRA [Suspect]
     Indication: BONE MARROW CONDITIONING REGIMEN
  3. THYMOGLOBULINE [Suspect]
     Indication: ACUTE MYELOID LEUKAEMIA
     Dosage: 2.5 MG/KG, QD (EVERY TWO HOURS)
     Route: 065
  4. THYMOGLOBULINE [Suspect]
     Indication: BONE MARROW CONDITIONING REGIMEN
  5. ARACYTINE [Suspect]
     Indication: ACUTE MYELOID LEUKAEMIA
     Dosage: 1 G/M2, QDX5
     Route: 065
  6. ARACYTINE [Suspect]
     Indication: BONE MARROW CONDITIONING REGIMEN
  7. ENDOXAN [Suspect]
     Indication: ACUTE MYELOID LEUKAEMIA
     Dosage: 60 MG/KG, ONCE
     Route: 065
  8. ENDOXAN [Suspect]
     Indication: BONE MARROW CONDITIONING REGIMEN
  9. BUSILVEX [Suspect]
     Indication: ACUTE MYELOID LEUKAEMIA
     Dosage: UNK
     Route: 065
  10. BUSILVEX [Suspect]
     Indication: BONE MARROW CONDITIONING REGIMEN
  11. CYCLOSPORINE [Concomitant]
     Indication: PROPHYLAXIS AGAINST GRAFT VERSUS HOST DISEASE
     Dosage: UNK
     Route: 065

REACTIONS (2)
  - Cystitis haemorrhagic [Recovered/Resolved]
  - Urethral stenosis [Recovered/Resolved]
